FAERS Safety Report 17866961 (Version 1)
Quarter: 2020Q2

REPORT INFORMATION
  Report Type: Spontaneous
  Country: US (occurrence: US)
  Receive Date: 20200605
  Receipt Date: 20200605
  Transmission Date: 20200714
  Serious: No
  Sender: FDA-Public Use
  Company Number: US-BAYER-2020-106734

PATIENT
  Age: 70 Year
  Sex: Female

DRUGS (5)
  1. VITAMIN D [VITAMIN D NOS] [Concomitant]
     Active Substance: VITAMIN D NOS
  2. ALEVE [Suspect]
     Active Substance: NAPROXEN SODIUM
     Indication: PAIN
     Dosage: UNK
     Route: 048
     Dates: start: 202005
  3. FISH OIL [Concomitant]
     Active Substance: FISH OIL
  4. EXCEDRIN [ACETYLSALICYLIC ACID;CAFFEINE;SALICYLAMIDE] [Concomitant]
  5. DIGESTIVE HEALTH PROBIOTIC [Concomitant]

REACTIONS (2)
  - Pain [Not Recovered/Not Resolved]
  - Drug ineffective [Not Recovered/Not Resolved]
